FAERS Safety Report 4786452-6 (Version None)
Quarter: 2005Q4

REPORT INFORMATION
  Report Type: 
  Country: None (occurrence: None)
  Receive Date: 20051003
  Receipt Date: 20050926
  Transmission Date: 20060501
  Serious: Yes (Hospitalization)
  Sender: FDA-Public Use
  Company Number: FR-MERCK-0509FRA00070

PATIENT
  Age: 83 Year
  Sex: Male

DRUGS (3)
  1. FOSAMAX [Suspect]
     Route: 048
     Dates: start: 20050710, end: 20050717
  2. CALCIUM CARBONATE [Concomitant]
     Route: 048
     Dates: start: 20050622
  3. TRAMADOL HYDROCHLORIDE [Concomitant]
     Route: 048
     Dates: start: 20050622

REACTIONS (3)
  - BLOOD SODIUM DECREASED [None]
  - CHEST PAIN [None]
  - MESENTERIC VEIN THROMBOSIS [None]
